FAERS Safety Report 7954010-8 (Version None)
Quarter: 2011Q4

REPORT INFORMATION
  Report Type: 
  Country: None (occurrence: None)
  Receive Date: 20111202
  Receipt Date: 20111202
  Transmission Date: 20120403
  Serious: Yes (Other)
  Sender: FDA-Public Use
  Company Number: None

PATIENT
  Age: 57 Year
  Sex: Male
  Weight: 68.038 kg

DRUGS (1)
  1. MERCAPTOPURINE [Suspect]
     Indication: COLITIS ULCERATIVE
     Dosage: 2
     Route: 048
     Dates: start: 20111102, end: 20111129

REACTIONS (8)
  - ABDOMINAL PAIN UPPER [None]
  - RESPIRATORY DISORDER [None]
  - ABDOMINAL PAIN [None]
  - RASH [None]
  - HEADACHE [None]
  - HEART RATE IRREGULAR [None]
  - PRURITUS [None]
  - OCULAR HYPERAEMIA [None]
